FAERS Safety Report 11003288 (Version 3)
Quarter: 2017Q2

REPORT INFORMATION
  Report Type: Spontaneous
  Country: ES (occurrence: ES)
  Receive Date: 20150409
  Receipt Date: 20170508
  Transmission Date: 20170829
  Serious: Yes (Other)
  Sender: FDA-Public Use
  Company Number: ES-MACLEODS PHARMACEUTICALS US LTD-MAC2015001678

PATIENT

DRUGS (2)
  1. ESCITALOPRAM 10MG TABLET [Suspect]
     Active Substance: ESCITALOPRAM OXALATE
     Dosage: 20 MG, QD (THREE DAYS BEFORE ONSET THE DOSE WAS DOUBLED AT 20 MG)
     Route: 065
  2. ESCITALOPRAM 10MG TABLET [Suspect]
     Active Substance: ESCITALOPRAM OXALATE
     Indication: DEPRESSION
     Dosage: 10 MG, QD
     Route: 065

REACTIONS (5)
  - Angle closure glaucoma [Recovered/Resolved]
  - Extra dose administered [Recovered/Resolved]
  - Choroidal effusion [Recovered/Resolved]
  - Visual acuity reduced [Recovered/Resolved]
  - Headache [Recovered/Resolved]
